FAERS Safety Report 7624731-5 (Version None)
Quarter: 2011Q3

REPORT INFORMATION
  Report Type: 
  Country: None (occurrence: None)
  Receive Date: 20110720
  Receipt Date: 20110106
  Transmission Date: 20111222
  Serious: Yes (Death, Other)
  Sender: FDA-Public Use
  Company Number: US-BAYER-201011156NA

PATIENT
  Age: 54 Year
  Sex: Male

DRUGS (34)
  1. TRASYLOL [Suspect]
     Indication: CORONARY ARTERY BYPASS
     Route: 042
     Dates: start: 20041201
  2. WELLBUTRIN [Concomitant]
     Dosage: 300 MG, QD
     Dates: start: 20041218
  3. CELEXA [Concomitant]
     Dosage: 20 MG, UNK
     Dates: end: 20041218
  4. VIAGRA [Concomitant]
     Dosage: 100 MG, UNK
     Dates: end: 20041218
  5. NSAID'S [Concomitant]
     Dosage: 3 TIMES PER WEEK
     Dates: start: 20041001, end: 20041218
  6. METOPROLOL TARTRATE [Concomitant]
     Dosage: 150 MG, TID
     Route: 048
     Dates: start: 20041218
  7. SSI [Concomitant]
     Dosage: UNK
     Dates: start: 20041218
  8. PHOLO [Concomitant]
     Dosage: 1, 3 TIMES DAILY WITH MEALS
     Route: 048
  9. NORVASC [Concomitant]
     Dosage: 7.5 MG, QD
     Dates: end: 20041218
  10. NORVASC [Concomitant]
     Dosage: 5 MG, UNK
     Dates: start: 20041218
  11. SUSTIVA [Concomitant]
     Dosage: 600 MG, UNK
     Dates: end: 20041218
  12. ACETYLSALICYLIC ACID SRT [Concomitant]
     Dosage: 81 MG, QD
     Dates: start: 20041218
  13. PROCRIT [Concomitant]
     Dosage: 40000
     Dates: end: 20041218
  14. AVANDIA [Concomitant]
     Dosage: 4 MG, UNK
     Dates: end: 20041218
  15. HEPARIN [Concomitant]
     Dosage: UNK
     Route: 042
     Dates: start: 20041218
  16. M.V.I. [Concomitant]
     Dosage: UNK
     Dates: start: 20041218
  17. LASIX [Concomitant]
     Dosage: 20 MG, QD
     Dates: end: 20041218
  18. EPIVIR [Concomitant]
     Dosage: 150 MG, UNK
     Dates: end: 20041218
  19. MUCOMYST [Concomitant]
     Dosage: 600, EVERY 2 HOURS
     Route: 048
     Dates: start: 20041218
  20. LOPRESSOR [Concomitant]
     Dosage: UNK
     Dates: start: 20041219
  21. BENADRYL [Concomitant]
     Dosage: 25 MG, UNK
     Dates: end: 20041218
  22. CELEXA [Concomitant]
     Dosage: 20 MG, QD
     Dates: start: 20041218
  23. PLAVIX [Concomitant]
     Dosage: 75 MG, QD
     Dates: start: 20041218
  24. INTEGRILIN [Concomitant]
     Dosage: 2MCG/KG/MIN
     Route: 042
     Dates: start: 20041218
  25. EPOGEN [Concomitant]
     Dosage: 10000 U, WEEKLY
  26. NITROGLYCERIN [Concomitant]
     Dosage: UNK
     Dates: start: 20041219
  27. ZOCOR [Concomitant]
     Dosage: 20 MG, QD
     Dates: end: 20041218
  28. ZANTAC [Concomitant]
     Dosage: 150 MG, UNK
     Dates: end: 20041218
  29. PEPCID [Concomitant]
     Dosage: 20 MG, QD
     Dates: start: 20041218
  30. WELLBUTRIN [Concomitant]
     Dosage: 300 MG, UNK
     Dates: start: 20041218, end: 20041218
  31. TOPROL-XL [Concomitant]
     Dosage: 100 MG, QD
     Dates: end: 20041218
  32. GLUCOTROL XL [Concomitant]
     Dosage: 10 MG, QD
     Dates: end: 20041218
  33. ZIAGEN [Concomitant]
     Dosage: 300 MG, UNK
     Dates: end: 20041218
  34. SIMVASTATIN [Concomitant]
     Dosage: 40 MG, UNK
     Dates: start: 20041218

REACTIONS (14)
  - ANXIETY [None]
  - RENAL FAILURE [None]
  - FEAR [None]
  - RENAL IMPAIRMENT [None]
  - INJURY [None]
  - CARDIAC DISORDER [None]
  - ORGAN FAILURE [None]
  - ANHEDONIA [None]
  - CEREBROVASCULAR ACCIDENT [None]
  - DEPRESSION [None]
  - RENAL INJURY [None]
  - DEATH [None]
  - UNEVALUABLE EVENT [None]
  - PAIN [None]
